FAERS Safety Report 19875011 (Version 1)
Quarter: 2021Q3

REPORT INFORMATION
  Report Type: Spontaneous
  Country: US (occurrence: US)
  Receive Date: 20210923
  Receipt Date: 20210923
  Transmission Date: 20211014
  Serious: No
  Sender: FDA-Public Use
  Company Number: US-PERRIGO-21US006662

PATIENT
  Age: 91 Year
  Sex: Female
  Weight: 68.03 kg

DRUGS (2)
  1. NYSTATIN AND TRIAMCINOLONE ACETONIDE [Suspect]
     Active Substance: NYSTATIN\TRIAMCINOLONE ACETONIDE
     Indication: VULVOVAGINAL PRURITUS
     Dosage: 1 APPLICATION, BID
     Route: 061
     Dates: start: 202010, end: 202010
  2. ACETAMINOPHEN. [Concomitant]
     Active Substance: ACETAMINOPHEN
     Indication: ARTHRALGIA
     Dosage: 1300 MG, QD
     Route: 048
     Dates: start: 202005, end: 20210509

REACTIONS (1)
  - Drug ineffective [Unknown]

NARRATIVE: CASE EVENT DATE: 202010
